FAERS Safety Report 13576743 (Version 1)
Quarter: 2017Q2

REPORT INFORMATION
  Report Type: Spontaneous
  Country: US (occurrence: US)
  Receive Date: 20170524
  Receipt Date: 20170524
  Transmission Date: 20170830
  Serious: Yes (Hospitalization)
  Sender: FDA-Public Use
  Company Number: None

PATIENT
  Age: 71 Year
  Sex: Male
  Weight: 111.6 kg

DRUGS (21)
  1. HYDRALAZINE [Concomitant]
     Active Substance: HYDRALAZINE HYDROCHLORIDE
  2. SEVELAMER CARBONATE. [Concomitant]
     Active Substance: SEVELAMER CARBONATE
  3. SIMVASTATIN. [Concomitant]
     Active Substance: SIMVASTATIN
  4. SITAGLIPTIN [Concomitant]
     Active Substance: SITAGLIPTIN
  5. ALLOPURINOL. [Concomitant]
     Active Substance: ALLOPURINOL
  6. AMLODIPINE [Concomitant]
     Active Substance: AMLODIPINE BESYLATE
  7. INSULIN GLARGINE [Concomitant]
     Active Substance: INSULIN GLARGINE
  8. CARVEDILOL. [Concomitant]
     Active Substance: CARVEDILOL
  9. TRAMADOL. [Concomitant]
     Active Substance: TRAMADOL
  10. ORBACTIV [Suspect]
     Active Substance: ORITAVANCIN
     Indication: STAPHYLOCOCCAL INFECTION
     Dosage: ?          OTHER FREQUENCY:150 ML/HR;?
     Route: 041
  11. FLUTICASONE-SALMETEROL [Concomitant]
  12. LUBIPROSTONE [Concomitant]
     Active Substance: LUBIPROSTONE
  13. SODIUM BICARBONATE. [Concomitant]
     Active Substance: SODIUM BICARBONATE
  14. ERGOCALCIFEROL. [Concomitant]
     Active Substance: ERGOCALCIFEROL
  15. IBUPROFEN. [Concomitant]
     Active Substance: IBUPROFEN
  16. TRIPHOCAPS [Concomitant]
  17. ORBACTIV [Suspect]
     Active Substance: ORITAVANCIN
     Indication: CELLULITIS
     Dosage: ?          OTHER FREQUENCY:150 ML/HR;?
     Route: 041
  18. BIMATOPROST. [Concomitant]
     Active Substance: BIMATOPROST
  19. FOLIC ACID. [Concomitant]
     Active Substance: FOLIC ACID
  20. FUROSEMIDE. [Concomitant]
     Active Substance: FUROSEMIDE
  21. TIMOLOL. [Concomitant]
     Active Substance: TIMOLOL

REACTIONS (8)
  - Muscle tightness [None]
  - Infusion related reaction [None]
  - Vomiting [None]
  - Dizziness [None]
  - Feeling cold [None]
  - Chills [None]
  - Nausea [None]
  - Blood pressure increased [None]

NARRATIVE: CASE EVENT DATE: 20170523
